FAERS Safety Report 23387017 (Version 2)
Quarter: 2024Q1

REPORT INFORMATION
  Report Type: Spontaneous
  Country: AT (occurrence: AT)
  Receive Date: 20240110
  Receipt Date: 20240114
  Transmission Date: 20240409
  Serious: Yes (Other)
  Sender: FDA-Public Use
  Company Number: AT-CELLTRION INC.-2024AT000179

PATIENT

DRUGS (3)
  1. INFLIXIMAB [Suspect]
     Active Substance: INFLIXIMAB
     Indication: Product used for unknown indication
     Dosage: UNK
     Route: 065
     Dates: start: 202212, end: 202301
  2. ADALIMUMAB [Suspect]
     Active Substance: ADALIMUMAB\ISOPROPYL ALCOHOL
     Indication: Scleritis
     Dosage: UNK
     Route: 058
     Dates: start: 202208, end: 202211
  3. RINVOQ [Suspect]
     Active Substance: UPADACITINIB
     Indication: Scleritis
     Dosage: UNK
     Route: 048
     Dates: start: 202309

REACTIONS (8)
  - Colitis [Unknown]
  - C-reactive protein increased [Recovered/Resolved]
  - Iron deficiency [Unknown]
  - Gastritis [Unknown]
  - Haemoglobin abnormal [Unknown]
  - Arthralgia [Unknown]
  - Off label use [Unknown]
  - Off label use [Unknown]

NARRATIVE: CASE EVENT DATE: 20230909
